FAERS Safety Report 8376125-5 (Version None)
Quarter: 2012Q2

REPORT INFORMATION
  Report Type: 
  Country: None (occurrence: None)
  Receive Date: 20120522
  Receipt Date: 20120518
  Transmission Date: 20120825
  Serious: Yes (Other)
  Sender: FDA-Public Use
  Company Number: PHFR2012GB002857

PATIENT
  Sex: Male

DRUGS (4)
  1. TEGRETOL [Suspect]
     Dosage: 300 MG, IN MORNING AND 400 MG, AT NIGHT
     Route: 048
  2. TOPIRAMATE [Concomitant]
     Dosage: 200 MG, BID
  3. LAMOTRIGINE [Concomitant]
     Dosage: 100 MG, BID
  4. NITRAZEPAM [Concomitant]
     Dosage: 2.5 MG, BID

REACTIONS (1)
  - CONVULSION [None]
